FAERS Safety Report 9973382 (Version 1)
Quarter: 2014Q1

REPORT INFORMATION
  Report Type: Report from Study
  Country: US (occurrence: US)
  Receive Date: 20140306
  Receipt Date: 20140306
  Transmission Date: 20141002
  Serious: Yes (Hospitalization)
  Sender: FDA-Public Use
  Company Number: US-JNJFOC-20140300108

PATIENT
  Age: 75 Year
  Sex: Female
  Weight: 68.95 kg

DRUGS (2)
  1. REMICADE [Suspect]
     Indication: RHEUMATOID ARTHRITIS
     Route: 042
  2. METHOTREXATE [Suspect]
     Indication: RHEUMATOID ARTHRITIS
     Dosage: ON MONDAY
     Route: 048
     Dates: end: 20140221

REACTIONS (2)
  - Asthenia [Recovering/Resolving]
  - Decreased appetite [Recovering/Resolving]
